FAERS Safety Report 24034898 (Version 1)
Quarter: 2024Q3

REPORT INFORMATION
  Report Type: Spontaneous
  Country: IE (occurrence: IE)
  Receive Date: 20240701
  Receipt Date: 20240701
  Transmission Date: 20241017
  Serious: Yes (Other)
  Sender: ORPHALAN
  Company Number: IE-ORPHALAN-IE-ORP-24-00104

PATIENT

DRUGS (1)
  1. TRIENTINE TETRAHYDROCHLORIDE [Suspect]
     Active Substance: TRIENTINE TETRAHYDROCHLORIDE
     Indication: Hepato-lenticular degeneration
     Dosage: UNK, BID
     Route: 048

REACTIONS (2)
  - Disease progression [Not Recovered/Not Resolved]
  - Dysphagia [Not Recovered/Not Resolved]
